FAERS Safety Report 7743091-2 (Version None)
Quarter: 2011Q3

REPORT INFORMATION
  Report Type: 
  Country: None (occurrence: None)
  Receive Date: 20110912
  Receipt Date: 20110907
  Transmission Date: 20111222
  Serious: Yes (Hospitalization)
  Sender: FDA-Public Use
  Company Number: SK-ROCHE-792099

PATIENT
  Sex: Female
  Weight: 65 kg

DRUGS (9)
  1. TRANDOLAPRIL [Concomitant]
     Dates: start: 20110718, end: 20110725
  2. TORVACARD [Concomitant]
     Dates: start: 20110718, end: 20110725
  3. TARKA [Concomitant]
     Dates: start: 19980101, end: 20110719
  4. BEVACIZUMAB [Suspect]
     Indication: OVARIAN CANCER
     Route: 042
     Dates: start: 20110712
  5. LEXAURIN [Concomitant]
     Dates: start: 20110725
  6. EGILOK [Concomitant]
     Dates: start: 20110718
  7. NORVASC [Concomitant]
     Dates: start: 20110725
  8. CARBOPLATIN [Suspect]
     Indication: OVARIAN CANCER
     Route: 042
     Dates: start: 20110712
  9. PACLITAXEL [Suspect]
     Indication: OVARIAN CANCER
     Route: 042
     Dates: start: 20110712

REACTIONS (2)
  - HYPERTENSION [None]
  - SINUS TACHYCARDIA [None]
